FAERS Safety Report 7420233-X (Version None)
Quarter: 2011Q2

REPORT INFORMATION
  Report Type: 
  Country: None (occurrence: None)
  Receive Date: 20110418
  Receipt Date: 20110405
  Transmission Date: 20111010
  Serious: Yes (Hospitalization, Other)
  Sender: FDA-Public Use
  Company Number: US-ACTELION-A-US2011-46411

PATIENT

DRUGS (3)
  1. COUMADIN [Concomitant]
  2. TRACLEER [Suspect]
     Indication: PULMONARY ARTERIAL HYPERTENSION
     Dosage: UNK
     Route: 048
     Dates: start: 20101216, end: 20110313
  3. REVATIO [Concomitant]

REACTIONS (7)
  - MUSCULAR WEAKNESS [None]
  - PANIC ATTACK [None]
  - MYOCARDIAL INFARCTION [None]
  - LIVER FUNCTION TEST ABNORMAL [None]
  - HYPOAESTHESIA [None]
  - CEREBROVASCULAR ACCIDENT [None]
  - OXYGEN SATURATION DECREASED [None]
